FAERS Safety Report 8402829-1 (Version None)
Quarter: 2012Q2

REPORT INFORMATION
  Report Type: 
  Country: None (occurrence: None)
  Receive Date: 20120601
  Receipt Date: 20120523
  Transmission Date: 20120825
  Serious: Yes (Other)
  Sender: FDA-Public Use
  Company Number: US-VERTEX PHARMACEUTICALS INC.-AE-2012-007682

PATIENT
  Sex: Male
  Weight: 76.272 kg

DRUGS (3)
  1. INCIVEK [Suspect]
     Indication: HEPATITIS C
     Dates: start: 20120406
  2. RIBAVIRIN [Concomitant]
     Indication: HEPATITIS C
     Dates: start: 20120406
  3. PEGASYS [Concomitant]
     Indication: HEPATITIS C
     Dates: start: 20120406

REACTIONS (21)
  - POLLAKIURIA [None]
  - CHILLS [None]
  - FATIGUE [None]
  - NAUSEA [None]
  - SUBSTANCE USE [None]
  - WEIGHT DECREASED [None]
  - INFLUENZA LIKE ILLNESS [None]
  - ASTHENIA [None]
  - BACK PAIN [None]
  - DECREASED APPETITE [None]
  - LIVER FUNCTION TEST ABNORMAL [None]
  - MUSCULOSKELETAL CHEST PAIN [None]
  - ABNORMAL DREAMS [None]
  - PAIN [None]
  - PAIN IN EXTREMITY [None]
  - FEELING ABNORMAL [None]
  - VOMITING [None]
  - EYE INFLAMMATION [None]
  - RASH ERYTHEMATOUS [None]
  - PANCREATIC DISORDER [None]
  - DYSGEUSIA [None]
